FAERS Safety Report 25008760 (Version 1)
Quarter: 2025Q1

REPORT INFORMATION
  Report Type: Spontaneous
  Country: US (occurrence: None)
  Receive Date: 20250224
  Receipt Date: 20250224
  Transmission Date: 20250408
  Serious: Yes (Other)
  Sender: FDA-CTU
  Company Number: None

PATIENT
  Age: 45 Year
  Sex: Male
  Weight: 82 kg

DRUGS (6)
  1. PRASUGREL [Suspect]
     Active Substance: PRASUGREL
     Dosage: 10 MG DAILY ORAL
     Route: 048
     Dates: start: 20241227, end: 20250121
  2. ATORVASTATIN [Suspect]
     Active Substance: ATORVASTATIN
  3. LISINOPRIL [Concomitant]
     Active Substance: LISINOPRIL
  4. SPIRONOLACTONE [Concomitant]
     Active Substance: SPIRONOLACTONE
  5. CARVEDILOL [Concomitant]
     Active Substance: CARVEDILOL
  6. ASPIRIN [Concomitant]
     Active Substance: ASPIRIN

REACTIONS (2)
  - Ventricular extrasystoles [None]
  - Tachycardia [None]

NARRATIVE: CASE EVENT DATE: 20250105
